FAERS Safety Report 19100335 (Version 1)
Quarter: 2021Q2

REPORT INFORMATION
  Report Type: Report from Study
  Country: CL (occurrence: CL)
  Receive Date: 20210407
  Receipt Date: 20210407
  Transmission Date: 20210717
  Serious: Yes (Hospitalization)
  Sender: FDA-Public Use
  Company Number: CL-JNJFOC-20210303106

PATIENT
  Age: 30 Year
  Sex: Male

DRUGS (1)
  1. SIMPONI [Suspect]
     Active Substance: GOLIMUMAB
     Indication: PSORIATIC ARTHROPATHY
     Dosage: LAST ADHERENCE 26?JAN?2021
     Route: 058
     Dates: start: 20200224, end: 20210224

REACTIONS (2)
  - Inappropriate schedule of product administration [Unknown]
  - COVID-19 [Unknown]

NARRATIVE: CASE EVENT DATE: 20210219
